FAERS Safety Report 17579601 (Version 4)
Quarter: 2021Q4

REPORT INFORMATION
  Report Type: Report from Study
  Country: US (occurrence: US)
  Receive Date: 20200325
  Receipt Date: 20211229
  Transmission Date: 20220303
  Serious: Yes (Hospitalization)
  Sender: FDA-Public Use
  Company Number: NVSC2020US081086

PATIENT
  Sex: Male

DRUGS (1)
  1. ENTRESTO [Suspect]
     Active Substance: SACUBITRIL\VALSARTAN
     Indication: Product used for unknown indication
     Dosage: 50 MG, BID
     Route: 048
     Dates: start: 202103

REACTIONS (9)
  - Coronavirus infection [Unknown]
  - Productive cough [Unknown]
  - Blood pressure abnormal [Recovering/Resolving]
  - Stress [Unknown]
  - Memory impairment [Unknown]
  - Fall [Unknown]
  - Sensory loss [Unknown]
  - Urinary incontinence [Unknown]
  - Cough [Not Recovered/Not Resolved]
